FAERS Safety Report 8230385 (Version 2)
Quarter: 2012Q4

REPORT INFORMATION
  Report Type: 
  Country: US (occurrence: US)
  Receive Date: 20111106
  Receipt Date: 20121107
  Transmission Date: 20130627
  Serious: No
  Sender: FDA-Public Use
  Company Number: US-AMGEN-USASP2011042746

PATIENT
  Age: 51 Year
  Sex: Female
  Weight: 63.49 kg

DRUGS (13)
  1. ENBREL [Suspect]
     Indication: PRODUCT USED FOR UNKNOWN INDICATION
     Dosage: 50 mg, qwk
     Route: 058
  2. AMBIEN CR [Concomitant]
     Dosage: 12.5 mg, UNK
  3. TRAMADOL HCL [Concomitant]
     Dosage: 50 mg, UNK
  4. MULTIVITAMIN [Concomitant]
     Dosage: UNK
  5. GRAPE SEED EXTRACT [Concomitant]
     Dosage: UNK
  6. VITAMIN D /00107901/ [Concomitant]
     Dosage: 1000 IU, UNK
  7. CALCIUM + VITAMIN D [Concomitant]
  8. CRANBERRY [Concomitant]
     Dosage: 1000 mg, UNK
  9. DICLOFENAC [Concomitant]
     Dosage: 75 mg, UNK
  10. GINGER                             /01646602/ [Concomitant]
     Dosage: 500 mg, UNK
  11. PREVACID [Concomitant]
     Dosage: 30 mg, UNK
  12. GAS RELIEF [Concomitant]
     Dosage: 125 mg, UNK
  13. LYRICA [Concomitant]
     Dosage: 100 mg, UNK

REACTIONS (5)
  - Erythema [Unknown]
  - Pruritus [Unknown]
  - Injection site swelling [Recovering/Resolving]
  - Injection site pruritus [Recovering/Resolving]
  - Injection site erythema [Recovering/Resolving]
